FAERS Safety Report 7041273-9 (Version None)
Quarter: 2010Q4

REPORT INFORMATION
  Report Type: 
  Country: None (occurrence: None)
  Receive Date: 20101013
  Receipt Date: 20101004
  Transmission Date: 20110411
  Serious: Yes (Hospitalization, Other)
  Sender: FDA-Public Use
  Company Number: PHHY2010FR66771

PATIENT
  Sex: Female

DRUGS (19)
  1. ZOMETA [Suspect]
     Dosage: 4 MG/5 ML, 1 DOSAGE FORM MONTHLY
     Dates: start: 20100501
  2. ZOMETA [Suspect]
     Dosage: 4 MG
     Dates: start: 20100730
  3. TAXOTERE [Suspect]
     Dosage: 150 MG, DAILY
     Dates: start: 20100730
  4. RADIOTHERAPY [Concomitant]
     Dosage: UNK
     Dates: start: 20100501
  5. IRBESARTAN [Concomitant]
  6. DOLIPRANE [Concomitant]
  7. DURAGESIC-100 [Concomitant]
  8. FORLAX [Concomitant]
  9. INIPOMP [Concomitant]
  10. INNOVAR [Concomitant]
  11. NUCTALON [Concomitant]
  12. OXYCODONE HCL [Concomitant]
  13. PRIMPERAN [Concomitant]
  14. SOLUPRED [Concomitant]
  15. VENTOLIN [Concomitant]
  16. XYLOCAINE [Concomitant]
  17. PREVISCAN [Concomitant]
  18. LOVENOX [Concomitant]
  19. CORTANCYL [Concomitant]
     Dosage: UNK
     Dates: start: 20100909

REACTIONS (9)
  - CHEST PAIN [None]
  - COUGH [None]
  - DYSPNOEA [None]
  - HYPOTENSION [None]
  - INTERSTITIAL LUNG DISEASE [None]
  - LYMPHOCYTOSIS [None]
  - OXYGEN SATURATION DECREASED [None]
  - PULMONARY FIBROSIS [None]
  - RESPIRATORY DISORDER [None]
